FAERS Safety Report 22715212 (Version 4)
Quarter: 2024Q1

REPORT INFORMATION
  Report Type: Spontaneous
  Country: BR (occurrence: BR)
  Receive Date: 20230718
  Receipt Date: 20240208
  Transmission Date: 20240410
  Serious: Yes (Other)
  Sender: FDA-Public Use
  Company Number: BR-ASTELLAS-2023US020766

PATIENT
  Age: 74 Year
  Sex: Male

DRUGS (14)
  1. XTANDI [Suspect]
     Active Substance: ENZALUTAMIDE
     Indication: Prostate cancer
     Route: 048
     Dates: start: 20190919
  2. XTANDI [Suspect]
     Active Substance: ENZALUTAMIDE
     Indication: Spinal cord injury
     Route: 048
     Dates: start: 2021
  3. XTANDI [Suspect]
     Active Substance: ENZALUTAMIDE
     Indication: Metastases to spine
     Route: 048
     Dates: start: 20230715
  4. XTANDI [Suspect]
     Active Substance: ENZALUTAMIDE
     Indication: Spinal cord injury
     Route: 048
  5. XTANDI [Suspect]
     Active Substance: ENZALUTAMIDE
     Indication: Prostate cancer
     Route: 048
  6. XTANDI [Suspect]
     Active Substance: ENZALUTAMIDE
     Indication: Metastases to spine
     Route: 048
  7. XTANDI [Suspect]
     Active Substance: ENZALUTAMIDE
     Route: 048
  8. ZOLPIDEM TARTRATE [Concomitant]
     Active Substance: ZOLPIDEM TARTRATE
     Indication: Product used for unknown indication
     Dosage: UNK UNK, UNKNOWN FREQ.
     Route: 065
  9. METOPROLOL SUCCINATE [Concomitant]
     Active Substance: METOPROLOL SUCCINATE
     Indication: Blood pressure measurement
     Route: 065
  10. ALLOPURINOL [Concomitant]
     Active Substance: ALLOPURINOL
     Indication: Product used for unknown indication
     Dosage: 100 MG, EVERY OTHER DAY ((ONCE IN 2 DAYS))
     Route: 065
  11. FUROSEMIDE\POTASSIUM CHLORIDE [Concomitant]
     Active Substance: FUROSEMIDE\POTASSIUM CHLORIDE
     Indication: Cardiac disorder
     Dosage: UNK UNK, UNKNOWN FREQ.
     Route: 065
  12. DENOSUMAB [Concomitant]
     Active Substance: DENOSUMAB
     Indication: Bone disorder
     Dosage: UNK, MONTHLY
     Route: 065
  13. GOSERELIN [Concomitant]
     Active Substance: GOSERELIN
     Indication: Product used for unknown indication
     Route: 065
  14. OMEPRAZOLE [Concomitant]
     Active Substance: OMEPRAZOLE
     Indication: Gastrointestinal disorder
     Route: 065

REACTIONS (7)
  - Renal failure [Unknown]
  - Gait disturbance [Recovering/Resolving]
  - Abdominal discomfort [Recovering/Resolving]
  - Asthenia [Not Recovered/Not Resolved]
  - Respiratory disorder [Not Recovered/Not Resolved]
  - Prostatic specific antigen increased [Unknown]
  - Pain [Recovering/Resolving]
